FAERS Safety Report 19652636 (Version 2)
Quarter: 2021Q4

REPORT INFORMATION
  Report Type: Spontaneous
  Country: US (occurrence: US)
  Receive Date: 20210803
  Receipt Date: 20211129
  Transmission Date: 20220303
  Serious: Yes (Other)
  Sender: FDA-Public Use
  Company Number: US-GILEAD-2021-0542383

PATIENT
  Sex: Female
  Weight: 72.562 kg

DRUGS (11)
  1. COMPLERA [Suspect]
     Active Substance: EMTRICITABINE\RILPIVIRINE HYDROCHLORIDE\TENOFOVIR DISOPROXIL FUMARATE
     Indication: HIV infection
     Dosage: UNK
     Route: 048
     Dates: start: 2011, end: 201905
  2. BIKTARVY [Concomitant]
     Active Substance: BICTEGRAVIR SODIUM\EMTRICITABINE\TENOFOVIR ALAFENAMIDE FUMARATE
  3. ALBUTEROL [Concomitant]
     Active Substance: ALBUTEROL
  4. DULCOLAX (BISACODYL) [Concomitant]
     Active Substance: BISACODYL
  5. FISH OIL [Concomitant]
     Active Substance: FISH OIL
  6. IBUPROFEN [Concomitant]
     Active Substance: IBUPROFEN
  7. VITAMINS NOS [Concomitant]
     Active Substance: VITAMINS
  8. PRILOSEC [Concomitant]
     Active Substance: OMEPRAZOLE MAGNESIUM
  9. ROSUVASTATIN [Concomitant]
     Active Substance: ROSUVASTATIN
  10. TYLENOL [Concomitant]
     Active Substance: ACETAMINOPHEN
  11. VITAMIN D NOS [Concomitant]
     Active Substance: VITAMIN D NOS

REACTIONS (11)
  - Osteoporosis [Unknown]
  - Bone density decreased [Not Recovered/Not Resolved]
  - Pain [Not Recovered/Not Resolved]
  - Emotional distress [Not Recovered/Not Resolved]
  - Anxiety [Not Recovered/Not Resolved]
  - Anhedonia [Not Recovered/Not Resolved]
  - Blood glucose increased [Unknown]
  - Bone pain [Not Recovered/Not Resolved]
  - Osteitis [Not Recovered/Not Resolved]
  - Grip strength decreased [Not Recovered/Not Resolved]
  - Gait disturbance [Not Recovered/Not Resolved]

NARRATIVE: CASE EVENT DATE: 20180101
